FAERS Safety Report 5965558-X (Version None)
Quarter: 2008Q4

REPORT INFORMATION
  Report Type: 
  Country: None (occurrence: None)
  Receive Date: 20081125
  Receipt Date: 20080212
  Transmission Date: 20090506
  Serious: Yes (Other)
  Sender: FDA-Public Use
  Company Number: US-AMGEN-KDL259143

PATIENT
  Sex: Female
  Weight: 53.1 kg

DRUGS (7)
  1. ENBREL [Suspect]
     Indication: RHEUMATOID ARTHRITIS
     Route: 058
     Dates: start: 20010101
  2. HYDROCHLOROTHIAZIDE [Concomitant]
  3. FOLIC ACID [Concomitant]
  4. EVISTA [Concomitant]
  5. HYDROCODONE BITARTRATE [Concomitant]
  6. DOXYCYCLINE [Concomitant]
  7. LEFLUNOMIDE [Concomitant]
     Dates: start: 20050401, end: 20070403

REACTIONS (1)
  - MALIGNANT MELANOMA [None]
